FAERS Safety Report 5420877-0 (Version None)
Quarter: 2007Q3

REPORT INFORMATION
  Report Type: 
  Country: None (occurrence: None)
  Receive Date: 20070817
  Receipt Date: 20070817
  Transmission Date: 20080115
  Serious: Yes (Hospitalization)
  Sender: FDA-Public Use
  Company Number: None

PATIENT
  Sex: Male
  Weight: 76.59 kg

DRUGS (1)
  1. REMICADE [Suspect]
     Indication: COLITIS ULCERATIVE
     Dates: start: 20070806, end: 20070806

REACTIONS (4)
  - BACK PAIN [None]
  - DYSPNOEA [None]
  - FLUSHING [None]
  - PAIN [None]
